FAERS Safety Report 7294724-9 (Version None)
Quarter: 2011Q1

REPORT INFORMATION
  Report Type: 
  Country: None (occurrence: None)
  Receive Date: 20110216
  Receipt Date: 20110210
  Transmission Date: 20110831
  Serious: Yes (Hospitalization)
  Sender: FDA-Public Use
  Company Number: IT-TEVA-266809ISR

PATIENT
  Sex: Female
  Weight: 74 kg

DRUGS (17)
  1. LEVOTHYROXINE SODIUM [Concomitant]
     Route: 048
     Dates: start: 20101014
  2. ROSUVASTATIN [Concomitant]
     Indication: HYPERCHOLESTEROLAEMIA
     Route: 048
     Dates: start: 20090601, end: 20101001
  3. ACENOCOUMAROL [Concomitant]
     Indication: THROMBOSIS PROPHYLAXIS
  4. TORASEMIDE SODIUM [Concomitant]
     Indication: HYPERTENSION
     Route: 048
     Dates: start: 20100909
  5. LENALIDOMIDE [Suspect]
     Route: 048
     Dates: start: 20101102
  6. BACTRIM [Concomitant]
     Indication: ANTIBIOTIC PROPHYLAXIS
     Route: 048
     Dates: start: 20100729
  7. DEXAMETHASONE [Suspect]
     Dates: start: 20100923
  8. LENALIDOMIDE [Suspect]
     Indication: MULTIPLE MYELOMA
     Route: 048
     Dates: start: 20100729
  9. DEXAMETHASONE [Suspect]
     Dates: start: 20101102
  10. ESOMEPRAZOLE MAGNESIUM [Concomitant]
     Route: 048
     Dates: start: 20101014
  11. ZOFENOPRIL (BIFRIZIDE) [Concomitant]
     Indication: HYPERTENSION
     Route: 048
     Dates: start: 20090101
  12. ACENOCOUMAROL [Concomitant]
     Indication: ATRIAL FIBRILLATION
     Route: 048
     Dates: start: 20070101
  13. LEVOTHYROXINE SODIUM [Concomitant]
     Indication: THYROID NEOPLASM
     Route: 048
     Dates: start: 20100401, end: 20101013
  14. DEXAMETHASONE [Suspect]
     Indication: MULTIPLE MYELOMA
     Dates: start: 20100729
  15. ESOMEPRAZOLE MAGNESIUM [Concomitant]
     Indication: PROPHYLAXIS AGAINST GASTROINTESTINAL ULCER
     Route: 048
     Dates: start: 20100729, end: 20100930
  16. LENALIDOMIDE [Suspect]
     Route: 048
     Dates: start: 20100923
  17. DOXAZOSIN MESILATE [Concomitant]
     Indication: HYPERTENSION
     Route: 048
     Dates: start: 20090101, end: 20100908

REACTIONS (1)
  - BRONCHITIS [None]
